FAERS Safety Report 6115563-8 (Version None)
Quarter: 2009Q1

REPORT INFORMATION
  Report Type: 
  Country: None (occurrence: None)
  Receive Date: 20090313
  Receipt Date: 20090310
  Transmission Date: 20090719
  Serious: Yes (Death)
  Sender: FDA-Public Use
  Company Number: PHHY2009DE01829

PATIENT
  Age: 75 Year
  Sex: Male

DRUGS (5)
  1. DIOVAN HCT [Suspect]
     Indication: HYPERTENSION
     Dosage: 0.5 DF(160/12.5 MG)/DAY
     Dates: start: 20020101
  2. DIOVAN [Suspect]
  3. MARCUMAR [Concomitant]
  4. DIURETICS [Concomitant]
  5. BETA BLOCKING AGENTS [Concomitant]

REACTIONS (10)
  - CARDIAC FAILURE ACUTE [None]
  - DRY MOUTH [None]
  - DYSPNOEA [None]
  - FATIGUE [None]
  - LACRIMATION INCREASED [None]
  - MOBILITY DECREASED [None]
  - MUSCULOSKELETAL DISCOMFORT [None]
  - PRURITUS [None]
  - SENSATION OF PRESSURE [None]
  - TREATMENT NONCOMPLIANCE [None]
